FAERS Safety Report 5892947-4 (Version None)
Quarter: 2008Q3

REPORT INFORMATION
  Report Type: 
  Country: None (occurrence: None)
  Receive Date: 20080919
  Receipt Date: 20080916
  Transmission Date: 20090109
  Serious: Yes (Life-Threatening, Hospitalization)
  Sender: FDA-Public Use
  Company Number: GXKR2008DE08878

PATIENT
  Sex: Male

DRUGS (3)
  1. RAMIPRIL [Suspect]
     Indication: HYPERTENSION
     Dosage: 1 DOSAGE FORM EVERY DAY, ORAL
     Route: 048
  2. LERCANIDIPINE [Concomitant]
  3. MOXONIDINE (MOXONIDINE) [Concomitant]

REACTIONS (1)
  - ANGIOEDEMA [None]
